FAERS Safety Report 5490541-0 (Version None)
Quarter: 2007Q4

REPORT INFORMATION
  Report Type: 
  Country: None (occurrence: None)
  Receive Date: 20071019
  Receipt Date: 20071016
  Transmission Date: 20080405
  Serious: Yes (Hospitalization)
  Sender: FDA-Public Use
  Company Number: FR-BRISTOL-MYERS SQUIBB COMPANY-13944046

PATIENT
  Age: 49 Year
  Sex: Female
  Weight: 65 kg

DRUGS (2)
  1. ABILIFY [Suspect]
     Dosage: 2 TABLETS PER DAY FOR 1 YEAR(START DATE IN 2006)
     Dates: start: 20060101
  2. XANAX [Concomitant]

REACTIONS (2)
  - BREAST ABSCESS [None]
  - HYPERPROLACTINAEMIA [None]
